FAERS Safety Report 6672440-1 (Version None)
Quarter: 2010Q2

REPORT INFORMATION
  Report Type: 
  Country: None (occurrence: None)
  Receive Date: 20100408
  Receipt Date: 20100330
  Transmission Date: 20101027
  Serious: Yes (Death)
  Sender: FDA-Public Use
  Company Number: US-MYLANLABS-2010S1005463

PATIENT
  Sex: Female

DRUGS (2)
  1. FENTANYL CITRATE [Suspect]
     Indication: PAIN
     Dates: end: 20080208
  2. FENTANYL CITRATE [Suspect]
     Dates: end: 20080208

REACTIONS (1)
  - NARCOTIC INTOXICATION [None]
